FAERS Safety Report 23671299 (Version 1)
Quarter: 2024Q1

REPORT INFORMATION
  Report Type: Report from Study
  Country: US (occurrence: US)
  Receive Date: 20240326
  Receipt Date: 20240326
  Transmission Date: 20240410
  Serious: No
  Sender: FDA-Public Use
  Company Number: US-BIOVITRUM-2024-US-003305

PATIENT
  Age: 64 Year
  Sex: Female

DRUGS (2)
  1. KINERET [Suspect]
     Active Substance: ANAKINRA
     Indication: Rheumatoid arthritis
     Dosage: 1X (ONCE DAILY)
     Route: 058
     Dates: start: 20240225
  2. KINERET [Suspect]
     Active Substance: ANAKINRA
     Route: 058
     Dates: start: 20240210

REACTIONS (7)
  - Bronchitis [Unknown]
  - Product dose omission in error [Unknown]
  - Arthritis [Unknown]
  - Pruritus [Unknown]
  - Injection site haemorrhage [Unknown]
  - Fatigue [Unknown]
  - Product dose omission issue [Unknown]
